FAERS Safety Report 6335963-0 (Version None)
Quarter: 2009Q3

REPORT INFORMATION
  Report Type: 
  Country: None (occurrence: None)
  Receive Date: 20090901
  Receipt Date: 20090826
  Transmission Date: 20100115
  Serious: Yes (Other)
  Sender: FDA-Public Use
  Company Number: AU-RANBAXY-2009R3-26547

PATIENT

DRUGS (2)
  1. CEFACLOR [Suspect]
     Indication: DRUG USE FOR UNKNOWN INDICATION
     Dosage: UNK
     Route: 048
     Dates: start: 20090730, end: 20090730
  2. VENTOLIN [Concomitant]
     Indication: DRUG USE FOR UNKNOWN INDICATION

REACTIONS (1)
  - EYELID OEDEMA [None]
